FAERS Safety Report 14794955 (Version 1)
Quarter: 2018Q2

REPORT INFORMATION
  Report Type: Spontaneous
  Country: FR (occurrence: FR)
  Receive Date: 20180423
  Receipt Date: 20180423
  Transmission Date: 20180711
  Serious: Yes (Other)
  Sender: FDA-Public Use
  Company Number: PHHY2018FR071043

PATIENT
  Age: 62 Year
  Sex: Female
  Weight: 58 kg

DRUGS (1)
  1. GLIVEC [Suspect]
     Active Substance: IMATINIB MESYLATE
     Indication: GASTROINTESTINAL STROMAL TUMOUR
     Dosage: 1 DF, UNK
     Route: 048
     Dates: start: 201610

REACTIONS (5)
  - Oedema peripheral [Not Recovered/Not Resolved]
  - Complex regional pain syndrome [Not Recovered/Not Resolved]
  - Paraesthesia [Recovered/Resolved]
  - Arthralgia [Recovering/Resolving]
  - Erythrocyanosis [Not Recovered/Not Resolved]

NARRATIVE: CASE EVENT DATE: 2017
